FAERS Safety Report 14231380 (Version 1)
Quarter: 2017Q4

REPORT INFORMATION
  Report Type: Spontaneous
  Country: US (occurrence: US)
  Receive Date: 20171128
  Receipt Date: 20171128
  Transmission Date: 20180321
  Serious: No
  Sender: FDA-Public Use
  Company Number: US-JNJFOC-20171001513

PATIENT
  Sex: Female

DRUGS (2)
  1. TYLENOL WITH CODEINE [Suspect]
     Active Substance: ACETAMINOPHEN\CODEINE PHOSPHATE
     Indication: MIGRAINE
     Dosage: 300MG/30MG- AS NEEDED
     Route: 048
     Dates: start: 2007
  2. TYLENOL WITH CODEINE [Suspect]
     Active Substance: ACETAMINOPHEN\CODEINE PHOSPHATE
     Indication: TEMPOROMANDIBULAR JOINT SYNDROME
     Dosage: 300MG/30MG- AS NEEDED
     Route: 048
     Dates: start: 2007

REACTIONS (7)
  - Tendon rupture [Unknown]
  - Fall [Unknown]
  - Migraine [Unknown]
  - Pain [Unknown]
  - Expired product administered [Unknown]
  - Adverse event [Unknown]
  - Therapeutic response unexpected [Unknown]

NARRATIVE: CASE EVENT DATE: 2014
